FAERS Safety Report 23496916 (Version 2)
Quarter: 2024Q1

REPORT INFORMATION
  Report Type: Spontaneous
  Country: DE (occurrence: DE)
  Receive Date: 20240208
  Receipt Date: 20240226
  Transmission Date: 20240410
  Serious: Yes (Hospitalization, Other)
  Sender: FDA-Public Use
  Company Number: DE-BAXTER-2024BAX012120

PATIENT
  Age: 27 Year
  Sex: Female

DRUGS (3)
  1. PROPOFOL [Suspect]
     Active Substance: PROPOFOL
     Indication: General anaesthesia
     Route: 065
  2. ISOFLURANE [Concomitant]
     Active Substance: ISOFLURANE
     Indication: General anaesthesia
     Route: 065
  3. NITROUS OXIDE [Concomitant]
     Active Substance: NITROUS OXIDE
     Indication: General anaesthesia
     Route: 065

REACTIONS (3)
  - Hepatitis cholestatic [Recovering/Resolving]
  - Liver function test decreased [Recovered/Resolved]
  - Ascites [Recovered/Resolved]
